FAERS Safety Report 9210187 (Version 3)
Quarter: 2013Q2

REPORT INFORMATION
  Report Type: Report from Study
  Country: US (occurrence: US)
  Receive Date: 20130404
  Receipt Date: 20130423
  Transmission Date: 20140414
  Serious: Yes (Hospitalization)
  Sender: FDA-Public Use
  Company Number: US-TEVA-394500USA

PATIENT
  Age: 71 Year
  Sex: Female
  Weight: 51.9 kg

DRUGS (10)
  1. TREANDA [Suspect]
     Indication: CHRONIC LYMPHOCYTIC LEUKAEMIA
     Route: 042
     Dates: start: 20130304
  2. TREANDA [Suspect]
     Route: 042
     Dates: start: 20130305
  3. RITUXIMAB [Suspect]
     Indication: CHRONIC LYMPHOCYTIC LEUKAEMIA
     Route: 042
     Dates: start: 20130129, end: 20130212
  4. RITUXIMAB [Suspect]
     Route: 042
     Dates: start: 20130212
  5. IBRUTINIB [Suspect]
     Indication: CHRONIC LYMPHOCYTIC LEUKAEMIA
     Dosage: 420 MILLIGRAM DAILY;
     Route: 048
     Dates: start: 20130304, end: 20130310
  6. PLACEBO [Suspect]
     Indication: CHRONIC LYMPHOCYTIC LEUKAEMIA
     Dosage: 420 MILLIGRAM DAILY;
     Route: 048
     Dates: start: 20130304, end: 20130310
  7. LYRICA [Concomitant]
     Indication: HERPES VIRUS INFECTION
  8. PLAVIX [Concomitant]
     Indication: PRODUCT USED FOR UNKNOWN INDICATION
  9. CHOLESTYRAMINE [Concomitant]
     Indication: FREQUENT BOWEL MOVEMENTS
  10. IMODIUM [Concomitant]
     Indication: DIARRHOEA
     Dates: start: 20130308

REACTIONS (1)
  - Colitis ischaemic [Recovered/Resolved]
